FAERS Safety Report 12356859 (Version 7)
Quarter: 2016Q4

REPORT INFORMATION
  Report Type: Spontaneous
  Country: US (occurrence: US)
  Receive Date: 20160511
  Receipt Date: 20161221
  Transmission Date: 20170207
  Serious: Yes (Hospitalization, Other)
  Sender: FDA-Public Use
  Company Number: US-PFIZER INC-2016232990

PATIENT
  Age: 74 Year
  Sex: Male
  Weight: 111.11 kg

DRUGS (3)
  1. INLYTA [Suspect]
     Active Substance: AXITINIB
     Indication: METASTATIC RENAL CELL CARCINOMA
     Dosage: 5 MG, DAILY
     Route: 048
     Dates: start: 20151102
  2. INLYTA [Suspect]
     Active Substance: AXITINIB
     Dosage: UNK
  3. INLYTA [Suspect]
     Active Substance: AXITINIB
     Dosage: 5 MG, DAILY
     Route: 048
     Dates: start: 20151102

REACTIONS (18)
  - Stomatitis [Not Recovered/Not Resolved]
  - Gait disturbance [Unknown]
  - Drug dose omission [Unknown]
  - Mastication disorder [Unknown]
  - Impaired healing [Not Recovered/Not Resolved]
  - Erythema [Unknown]
  - Peripheral swelling [Unknown]
  - Loose tooth [Unknown]
  - Fall [Unknown]
  - Wound infection [Not Recovered/Not Resolved]
  - Tibia fracture [Not Recovered/Not Resolved]
  - Mouth ulceration [Unknown]
  - Neuropathy peripheral [Unknown]
  - Memory impairment [Unknown]
  - Pain in extremity [Not Recovered/Not Resolved]
  - Fatigue [Unknown]
  - Asthenia [Unknown]
  - Tongue ulceration [Unknown]
